FAERS Safety Report 8476935 (Version 3)
Quarter: 2012Q4

REPORT INFORMATION
  Report Type: 
  Country: US (occurrence: US)
  Receive Date: 20120326
  Receipt Date: 20121114
  Transmission Date: 20130627
  Serious: Yes (Disabling, Other)
  Sender: FDA-Public Use
  Company Number: US-PFIZER INC-2012072367

PATIENT
  Age: 54 Year
  Sex: Female
  Weight: 73.47 kg

DRUGS (11)
  1. LYRICA [Suspect]
     Indication: DIABETIC NEUROPATHY
     Dosage: 150 mg, 2x/day
     Route: 048
     Dates: start: 2010, end: 20120313
  2. LYRICA [Suspect]
     Dosage: 150 mg, 1x/day
     Route: 048
     Dates: start: 20120314, end: 20120318
  3. LYRICA [Suspect]
     Dosage: 150 mg, 2x/day
     Route: 048
     Dates: start: 2012, end: 2012
  4. LYRICA [Suspect]
     Dosage: 100 mg, 3x/day
     Route: 048
     Dates: start: 2012
  5. LYRICA [Suspect]
     Dosage: UNK
     Route: 048
  6. PRAVACHOL [Concomitant]
     Dosage: 20 mg
  7. VITAMIN B12 [Concomitant]
     Dosage: UNK
  8. NORVASC [Concomitant]
     Indication: BLOOD PRESSURE HIGH
     Dosage: 10 mg
  9. NORVASC [Concomitant]
     Dosage: UNK
  10. TOPROL-XL [Concomitant]
     Indication: BLOOD PRESSURE HIGH
     Dosage: UNK
  11. FOLIC ACID [Concomitant]
     Dosage: UNK

REACTIONS (9)
  - Diabetic neuropathy [Unknown]
  - Palpitations [Recovered/Resolved]
  - Heart rate decreased [Recovered/Resolved]
  - Weight decreased [Unknown]
  - Drug ineffective [Unknown]
  - Hyperhidrosis [Recovered/Resolved]
  - Cold sweat [Recovered/Resolved]
  - Dry mouth [Recovered/Resolved]
  - Thirst [Recovered/Resolved]
